FAERS Safety Report 8226961-0 (Version None)
Quarter: 2012Q1

REPORT INFORMATION
  Report Type: 
  Country: None (occurrence: None)
  Receive Date: 20120322
  Receipt Date: 20120302
  Transmission Date: 20120608
  Serious: Yes (Hospitalization, Other)
  Sender: FDA-Public Use
  Company Number: TR-AMGEN-TURSP2012014432

PATIENT
  Age: 82 Year
  Sex: Female

DRUGS (6)
  1. MELOX [Concomitant]
     Dosage: 15 MG, 1X/DAY
     Route: 048
  2. FAMODIN [Concomitant]
     Dosage: 20 MG, 1X/DAY
     Route: 048
     Dates: start: 20120101
  3. PREDNOL                            /00049601/ [Concomitant]
     Dosage: 20 MG, 1X/DAY
     Route: 048
     Dates: start: 20120101
  4. TEGRETOL [Concomitant]
     Dosage: 200 MG, 1X/DAY
     Route: 048
  5. NORVASC [Concomitant]
     Dosage: 10 MG, 1X/DAY
     Route: 048
     Dates: start: 20120101
  6. ENBREL [Suspect]
     Indication: RHEUMATOID ARTHRITIS
     Dosage: 50 MG, WEEKLY
     Route: 058
     Dates: start: 20110908, end: 20120101

REACTIONS (4)
  - DYSPHAGIA [None]
  - WALKING DISABILITY [None]
  - PAIN IN EXTREMITY [None]
  - MALNUTRITION [None]
